FAERS Safety Report 9808323 (Version 1)
Quarter: 2014Q1

REPORT INFORMATION
  Report Type: Spontaneous
  Country: US (occurrence: None)
  Receive Date: 20140108
  Receipt Date: 20140108
  Transmission Date: 20141002
  Serious: Yes (Hospitalization)
  Sender: FDA-Public Use
  Company Number: 2014-000001

PATIENT
  Age: 56 Year
  Sex: Female

DRUGS (5)
  1. ACTONEL (RISEDRONATE SODIUM) TABLET, 150 MG [Suspect]
     Indication: OSTEOPOROSIS
     Dosage: 150 MG ONCE MONTHLY, ORAL
     Route: 048
     Dates: start: 201310, end: 20131228
  2. PRILOSEC /00661201/ {OMEPRAZOLE} [Concomitant]
  3. VITAMIN D /00318501/ {COLECALCIFEROL} [Concomitant]
  4. ESTRADIOL  {ESTRADIOL} [Concomitant]
  5. IRON {IRON} [Concomitant]

REACTIONS (4)
  - Rectal haemorrhage [None]
  - Abdominal pain [None]
  - Vomiting [None]
  - Diarrhoea [None]
